FAERS Safety Report 15838658 (Version 1)
Quarter: 2019Q1

REPORT INFORMATION
  Report Type: Spontaneous
  Country: GB (occurrence: GB)
  Receive Date: 20190117
  Receipt Date: 20190117
  Transmission Date: 20190417
  Serious: Yes (Other)
  Sender: FDA-Public Use
  Company Number: GB-B.I. PHARMACEUTICALS,INC./RIDGEFIELD-2019-12-000238

PATIENT
  Sex: Female

DRUGS (1)
  1. CATAPRES [Suspect]
     Active Substance: CLONIDINE HYDROCHLORIDE
     Indication: MENOPAUSE
     Route: 065

REACTIONS (10)
  - Paranoia [Unknown]
  - Paraesthesia [Unknown]
  - Suicidal ideation [Unknown]
  - Anxiety [Unknown]
  - Hypoaesthesia [Unknown]
  - Emotional poverty [Unknown]
  - Feeling abnormal [Unknown]
  - Apathy [Unknown]
  - Depressed mood [Unknown]
  - Fatigue [Unknown]
